FAERS Safety Report 5484470-6 (Version None)
Quarter: 2007Q4

REPORT INFORMATION
  Report Type: 
  Country: None (occurrence: None)
  Receive Date: 20071010
  Receipt Date: 20070927
  Transmission Date: 20080405
  Serious: Yes (Other)
  Sender: FDA-Public Use
  Company Number: MC200700633

PATIENT
  Age: 54 Year
  Sex: Female
  Weight: 50 kg

DRUGS (4)
  1. ANGIOMAX [Suspect]
     Dosage: 8.3 ML BOLUS, IV BOLUS; 15.3 ML HR, INTRAVENOUS
     Route: 040
     Dates: start: 20070926, end: 20070926
  2. ANGIOMAX [Suspect]
     Dosage: 8.3 ML BOLUS, IV BOLUS; 15.3 ML HR, INTRAVENOUS
     Route: 040
     Dates: start: 20070926
  3. HEPARIN [Suspect]
     Dosage: 30,000 IU, SINGLE, 10000 IU SINGLE
     Dates: start: 20070926, end: 20070926
  4. HEPARIN [Suspect]
     Dosage: 30,000 IU, SINGLE, 10000 IU SINGLE
     Dates: start: 20070926, end: 20070926

REACTIONS (5)
  - ACTIVATED PARTIAL THROMBOPLASTIN TIME PROLONGED [None]
  - COAGULATION TIME PROLONGED [None]
  - CORONARY ARTERY PERFORATION [None]
  - INTERNATIONAL NORMALISED RATIO INCREASED [None]
  - PROTHROMBIN TIME PROLONGED [None]
